FAERS Safety Report 5269989-5 (Version None)
Quarter: 2007Q1

REPORT INFORMATION
  Report Type: 
  Country: None (occurrence: None)
  Receive Date: 20070320
  Receipt Date: 20070313
  Transmission Date: 20070707
  Serious: Yes (Death, Hospitalization)
  Sender: FDA-Public Use
  Company Number: PHBS2006JP15241

PATIENT
  Age: 77 Year
  Sex: Male

DRUGS (3)
  1. DAUNOMYCIN [Concomitant]
     Dosage: 40 MG/D
  2. GLEEVEC [Suspect]
     Indication: BLAST CRISIS IN MYELOGENOUS LEUKAEMIA
     Dosage: 800 MG/D
     Route: 048
     Dates: start: 20060914, end: 20060928
  3. CYLOCIDE [Concomitant]
     Dosage: 120 MG/D

REACTIONS (5)
  - ASCITES [None]
  - CEREBROVASCULAR ACCIDENT [None]
  - FLUID IMBALANCE [None]
  - PLEURAL EFFUSION [None]
  - RESPIRATORY DISORDER [None]
